FAERS Safety Report 15638499 (Version 1)
Quarter: 2018Q4

REPORT INFORMATION
  Report Type: Spontaneous
  Country: US (occurrence: US)
  Receive Date: 20181120
  Receipt Date: 20181120
  Transmission Date: 20190205
  Serious: No
  Sender: FDA-Public Use
  Company Number: US-PERRIGO-18US000195

PATIENT
  Sex: Female
  Weight: 68.27 kg

DRUGS (2)
  1. FIBER [Concomitant]
     Active Substance: PSYLLIUM HUSK
     Indication: FAECES SOFT
     Dosage: 5 ML, UNKNOWN
     Route: 065
     Dates: start: 2016
  2. POLYETHYLENE GLYCOL 3350. [Suspect]
     Active Substance: POLYETHYLENE GLYCOL 3350
     Indication: FAECES SOFT
     Dosage: 8.5 G, THREE TIMES A WEEK
     Route: 048

REACTIONS (3)
  - Underdose [Not Recovered/Not Resolved]
  - Inappropriate schedule of product administration [Not Recovered/Not Resolved]
  - Wrong technique in product usage process [Not Recovered/Not Resolved]
